FAERS Safety Report 5612536-6 (Version None)
Quarter: 2008Q1

REPORT INFORMATION
  Report Type: 
  Country: None (occurrence: None)
  Receive Date: 20080201
  Receipt Date: 20080201
  Transmission Date: 20080703
  Serious: Yes (Other)
  Sender: FDA-Public Use
  Company Number: None

PATIENT
  Age: 81 Year
  Sex: Female

DRUGS (1)
  1. AZOPT [Suspect]
     Indication: GLAUCOMA
     Dosage: INSTILL 1 DROP IN EACH EYE TWICE A DAY

REACTIONS (1)
  - MYALGIA [None]
